FAERS Safety Report 11404766 (Version 5)
Quarter: 2015Q4

REPORT INFORMATION
  Report Type: Spontaneous
  Country: JP (occurrence: JP)
  Receive Date: 20150821
  Receipt Date: 20151005
  Transmission Date: 20160304
  Serious: Yes (Hospitalization, Other)
  Sender: FDA-Public Use
  Company Number: PHJP2015JP014109

PATIENT
  Age: 77 Year
  Sex: Female

DRUGS (3)
  1. ZOMETA [Suspect]
     Active Substance: ZOLEDRONIC ACID
     Indication: MALIGNANT ASCITES
     Dosage: 1 MG
     Route: 033
     Dates: start: 20141205, end: 20141205
  2. PACLITAXEL. [Suspect]
     Active Substance: PACLITAXEL
     Indication: PRODUCT USED FOR UNKNOWN INDICATION
     Dosage: 100 MG
     Route: 042
     Dates: start: 20141204
  3. PARAPLATIN [Suspect]
     Active Substance: CARBOPLATIN
     Indication: PRODUCT USED FOR UNKNOWN INDICATION
     Dosage: 300 MG
     Route: 042
     Dates: start: 20141204

REACTIONS (5)
  - Lymphocyte count decreased [Recovered/Resolved]
  - Hypophosphataemia [Recovered/Resolved]
  - Off label use [Unknown]
  - Incorrect route of drug administration [Unknown]
  - Embolism [Recovering/Resolving]

NARRATIVE: CASE EVENT DATE: 20141205
